FAERS Safety Report 20737924 (Version 2)
Quarter: 2022Q2

REPORT INFORMATION
  Report Type: Report from Study
  Country: TR (occurrence: TR)
  Receive Date: 20220422
  Receipt Date: 20220526
  Transmission Date: 20220721
  Serious: Yes (Death, Other)
  Sender: FDA-Public Use
  Company Number: TR-SUN PHARMACEUTICAL INDUSTRIES LTD-2022RR-334042

PATIENT
  Age: 3 Year
  Sex: Male

DRUGS (11)
  1. VINCRISTINE [Suspect]
     Active Substance: VINCRISTINE
     Indication: Pinealoblastoma
     Dosage: 1.5 MILLIGRAM/SQ. METER, 1ST DAY
     Route: 065
  2. IRINOTECAN [Suspect]
     Active Substance: IRINOTECAN
     Indication: Pinealoblastoma
     Dosage: 50 MILLIGRAM/SQ. METER, DAILY
     Route: 065
  3. TEMODAL [Suspect]
     Active Substance: TEMOZOLOMIDE
     Indication: Pinealoblastoma
     Dosage: 150 MILLIGRAM/SQ. METER, DAILY,  FOR 5 DAYS, EVERY 28 DAYS
     Route: 065
  4. TEMODAL [Suspect]
     Active Substance: TEMOZOLOMIDE
     Dosage: 100 MILLIGRAM/SQ. METER, DAILY, EVERY 3 WEEKS
     Route: 065
  5. ETOPOSIDE [Suspect]
     Active Substance: ETOPOSIDE
     Indication: Pinealoblastoma
     Dosage: 100 MILLIGRAM/SQ. METER, DAILY
     Route: 065
  6. CYCLOPHOSPHAMIDE [Suspect]
     Active Substance: CYCLOPHOSPHAMIDE
     Indication: Pinealoblastoma
     Dosage: 1 GRAM, DAILY
     Route: 065
  7. LOMUSTINE [Suspect]
     Active Substance: LOMUSTINE
     Indication: Pinealoblastoma
     Dosage: 100 MILLIGRAM PER CUBIC METRE, DAILY, EVERY 6 WEEKS
     Route: 065
  8. NIMOTUZUMAB [Suspect]
     Active Substance: NIMOTUZUMAB
     Indication: Pinealoblastoma
     Dosage: 150 MILLIGRAM/SQ. METER, WEEKLY
     Route: 065
  9. NIMOTUZUMAB [Suspect]
     Active Substance: NIMOTUZUMAB
     Dosage: 150 MILLIGRAM/SQ. METER, EVERY OTHER WEEK
     Route: 065
  10. VINORELBINE [Suspect]
     Active Substance: VINORELBINE TARTRATE
     Indication: Pinealoblastoma
     Dosage: 25 MILLIGRAM/SQ. METER, DAILY
     Route: 065
  11. METHOTREXATE [Suspect]
     Active Substance: METHOTREXATE
     Indication: Pinealoblastoma
     Dosage: 12 MILLIGRAM, ONCE EVERY WEEK FOR 3 TIMES
     Route: 065

REACTIONS (1)
  - Disease progression [Fatal]
